FAERS Safety Report 8905131 (Version 2)
Quarter: 2013Q1

REPORT INFORMATION
  Report Type: Spontaneous
  Country: US (occurrence: US)
  Receive Date: 20121113
  Receipt Date: 20130110
  Transmission Date: 20140127
  Serious: No
  Sender: FDA-Public Use
  Company Number: US-009507513-1210USA012748

PATIENT
  Age: 53 Year
  Sex: Male

DRUGS (3)
  1. PEG-INTRON [Suspect]
     Indication: HEPATITIS C
     Dosage: 150 MICROGRAM, QW
     Route: 058
     Dates: start: 20121008
  2. RIBASPHERE [Suspect]
     Indication: HEPATITIS C
     Dosage: 600 MG, QAM
  3. RIBASPHERE [Suspect]
     Dosage: 800 MG, QPM
     Route: 048

REACTIONS (3)
  - Tremor [Unknown]
  - Chills [Unknown]
  - Pyrexia [Unknown]
